FAERS Safety Report 9320580 (Version 1)
Quarter: 2013Q2

REPORT INFORMATION
  Report Type: Report from Study
  Country: GB (occurrence: GB)
  Receive Date: 20130531
  Receipt Date: 20130531
  Transmission Date: 20140414
  Serious: Yes (Hospitalization)
  Sender: FDA-Public Use
  Company Number: GB-ROCHE-1228802

PATIENT
  Age: 51 Year
  Sex: Male
  Weight: 84 kg

DRUGS (4)
  1. BEVACIZUMAB [Suspect]
     Indication: GASTRIC CANCER
     Dosage: MOST RECENT ADMINISTRATION WAS ON 5/MAR/2013. ACTUAL DOSE GIVEN AT MOST RECENT ADMINISTRATION WAS 65
     Route: 042
     Dates: start: 20130211
  2. CAPECITABINE [Suspect]
     Indication: GASTRIC CANCER
     Dosage: MOST RECENT ADMINISTRATION WAS ON 11/MAR/2013. ACTUAL DOSE GIVEN AT MOST RECENT ADMINISTRATION WAS 2
     Route: 048
     Dates: start: 20130211
  3. EPIRUBICIN [Suspect]
     Indication: GASTRIC CANCER
     Dosage: MOST RECENT ADMINISTRATION WAS ON 5/MAR/2013. ACTUAL DOSE GIVEN AT MOST RECENT ADMINISTRATION WAS 10
     Route: 042
     Dates: start: 20130211
  4. CISPLATIN [Suspect]
     Indication: GASTRIC CANCER
     Dosage: MOST RECENT ADMINISTRATION WAS ON 5MAR/2013. ACTUAL DOSE GIVEN AT MOST RECENT ADMINISTRATION WAS 120
     Route: 042
     Dates: start: 20130211

REACTIONS (2)
  - Decreased appetite [Not Recovered/Not Resolved]
  - Palmar-plantar erythrodysaesthesia syndrome [Unknown]
